FAERS Safety Report 16325187 (Version 4)
Quarter: 2019Q4

REPORT INFORMATION
  Report Type: Spontaneous
  Country: JP (occurrence: JP)
  Receive Date: 20190517
  Receipt Date: 20191230
  Transmission Date: 20200122
  Serious: Yes (Other)
  Sender: FDA-Public Use
  Company Number: JP-ROCHE-2319600

PATIENT
  Age: 45 Year
  Sex: Male

DRUGS (24)
  1. SAMSCA [Concomitant]
     Active Substance: TOLVAPTAN
     Route: 065
     Dates: start: 201809
  2. AMIODARONE HYDROCHLORIDE. [Concomitant]
     Active Substance: AMIODARONE HYDROCHLORIDE
     Route: 065
     Dates: start: 201809
  3. MAGMITT [Concomitant]
     Active Substance: MAGNESIUM OXIDE
     Route: 065
     Dates: start: 201809
  4. XOFLUZA [Suspect]
     Active Substance: BALOXAVIR MARBOXIL
     Indication: INFLUENZA
     Route: 048
     Dates: start: 20190201, end: 20190201
  5. WARFARIN POTASSIUM [Interacting]
     Active Substance: WARFARIN POTASSIUM
     Route: 065
     Dates: start: 20190213
  6. WARFARIN POTASSIUM [Interacting]
     Active Substance: WARFARIN POTASSIUM
     Route: 065
     Dates: start: 20190214
  7. CLOPIDOGREL SULFATE [Concomitant]
     Active Substance: CLOPIDOGREL BISULFATE
     Route: 065
     Dates: start: 201809
  8. SELARA [Concomitant]
     Active Substance: EPLERENONE
     Route: 065
     Dates: start: 201809
  9. WARFARIN POTASSIUM [Interacting]
     Active Substance: WARFARIN POTASSIUM
     Route: 065
     Dates: start: 20190216
  10. BELSOMRA [Concomitant]
     Active Substance: SUVOREXANT
     Route: 065
     Dates: start: 201809
  11. OLOPATADINE HYDROCHLORIDE. [Concomitant]
     Active Substance: OLOPATADINE HYDROCHLORIDE
     Route: 065
     Dates: start: 201812
  12. WARFARIN POTASSIUM [Interacting]
     Active Substance: WARFARIN POTASSIUM
     Route: 065
     Dates: start: 20190215
  13. ENALAPRIL MALEATE. [Concomitant]
     Active Substance: ENALAPRIL MALEATE
     Route: 065
     Dates: start: 201809
  14. MIYA-BM [Concomitant]
     Active Substance: CLOSTRIDIUM BUTYRICUM SPORES STRAIN M-55
     Route: 065
     Dates: start: 201809
  15. LYRICA [Concomitant]
     Active Substance: PREGABALIN
     Route: 065
     Dates: start: 201810
  16. WARFARIN POTASSIUM [Interacting]
     Active Substance: WARFARIN POTASSIUM
     Indication: PRODUCT USED FOR UNKNOWN INDICATION
     Route: 065
     Dates: start: 201809
  17. WARFARIN POTASSIUM [Interacting]
     Active Substance: WARFARIN POTASSIUM
     Route: 065
     Dates: start: 20190201
  18. WARFARIN POTASSIUM [Interacting]
     Active Substance: WARFARIN POTASSIUM
     Route: 065
     Dates: start: 20190205
  19. WARFARIN POTASSIUM [Interacting]
     Active Substance: WARFARIN POTASSIUM
     Route: 065
     Dates: start: 20190208
  20. LASIX [Concomitant]
     Active Substance: FUROSEMIDE
     Route: 065
     Dates: start: 201809
  21. QUETIAPINE. [Concomitant]
     Active Substance: QUETIAPINE
     Route: 065
     Dates: start: 201809
  22. WARFARIN POTASSIUM [Interacting]
     Active Substance: WARFARIN POTASSIUM
     Route: 065
     Dates: start: 20190203
  23. TAKECAB [Concomitant]
     Active Substance: VONOPRAZAN FUMURATE
     Route: 065
     Dates: start: 201809
  24. ARTIST [Concomitant]
     Active Substance: CARVEDILOL
     Route: 065
     Dates: start: 201809

REACTIONS (2)
  - International normalised ratio increased [Recovered/Resolved]
  - Drug interaction [Unknown]

NARRATIVE: CASE EVENT DATE: 20190205
